FAERS Safety Report 9524356 (Version 4)
Quarter: 2014Q2

REPORT INFORMATION
  Report Type: Spontaneous
  Country: DE (occurrence: DE)
  Receive Date: 20130916
  Receipt Date: 20140515
  Transmission Date: 20141212
  Serious: Yes (Death)
  Sender: FDA-Public Use
  Company Number: DE-JNJFOC-20130907823

PATIENT
  Age: 67 Year
  Sex: Female
  Weight: 68 kg

DRUGS (8)
  1. XARELTO [Suspect]
     Indication: THROMBOSIS PROPHYLAXIS
     Route: 048
     Dates: start: 20130812, end: 20130814
  2. XARELTO [Suspect]
     Indication: KNEE OPERATION
     Route: 048
     Dates: start: 20130812, end: 20130814
  3. PANTOPRAZOLE [Concomitant]
     Route: 048
     Dates: start: 20130812, end: 20130814
  4. ROPIVACAINE [Concomitant]
     Indication: ANALGESIC THERAPY
     Route: 065
     Dates: start: 20130812, end: 20130814
  5. DICLOFENAC SODIUM [Concomitant]
     Route: 065
     Dates: start: 20130814
  6. TRAMADOL HYDROCHLORIDE [Concomitant]
     Route: 065
     Dates: start: 20130812, end: 20130814
  7. NOVAMINSULFON [Concomitant]
     Route: 065
     Dates: start: 20130812, end: 20130814
  8. PRESOMEN [Concomitant]
     Indication: MENOPAUSAL SYMPTOMS
     Route: 048

REACTIONS (1)
  - Pulmonary embolism [Fatal]
